FAERS Safety Report 5358034-9 (Version None)
Quarter: 2007Q2

REPORT INFORMATION
  Report Type: 
  Country: None (occurrence: None)
  Receive Date: 20070530
  Receipt Date: 20061118
  Transmission Date: 20071010
  Serious: Yes (Other)
  Sender: FDA-Public Use
  Company Number: US200611004209

PATIENT
  Age: 29 Year
  Sex: Male

DRUGS (2)
  1. ZYPREXA ZYDIS [Suspect]
     Dosage: 10 MG, ORAL, 20 , ORAL
     Route: 048
     Dates: start: 20060701
  2. TRILIFAN (PERPHENAZINE) [Concomitant]

REACTIONS (2)
  - TACHYCARDIA [None]
  - WEIGHT INCREASED [None]
